FAERS Safety Report 4595196-5 (Version None)
Quarter: 2005Q1

REPORT INFORMATION
  Report Type: 
  Country: None (occurrence: None)
  Receive Date: 20050224
  Receipt Date: 20050217
  Transmission Date: 20050727
  Serious: Yes (Hospitalization)
  Sender: FDA-Public Use
  Company Number: 212532

PATIENT
  Age: 63 Year
  Sex: Male

DRUGS (1)
  1. XOLAIR [Suspect]
     Indication: ASTHMA
     Dates: start: 20050204, end: 20050204

REACTIONS (3)
  - FEELING ABNORMAL [None]
  - HYPERGLYCAEMIA [None]
  - PNEUMONIA [None]
